FAERS Safety Report 5547806-3 (Version None)
Quarter: 2007Q4

REPORT INFORMATION
  Report Type: 
  Country: None (occurrence: None)
  Receive Date: 20071128
  Receipt Date: 20070410
  Transmission Date: 20080405
  Serious: Yes (Other)
  Sender: FDA-Public Use
  Company Number: 2007029613

PATIENT
  Sex: Male

DRUGS (1)
  1. LIPITOR [Suspect]
     Dosage: 10 MG (10 MG, 1 IN 1 D)
     Dates: start: 20070330, end: 20070407

REACTIONS (2)
  - BLOOD PRESSURE DIASTOLIC INCREASED [None]
  - HEADACHE [None]
